FAERS Safety Report 15735932 (Version 1)
Quarter: 2018Q4

REPORT INFORMATION
  Report Type: Spontaneous
  Country: US (occurrence: US)
  Receive Date: 20181205
  Receipt Date: 20181205
  Transmission Date: 20190205
  Serious: Yes (Other)
  Sender: FDA-Public Use
  Company Number: None

PATIENT
  Age: 20 Year
  Sex: Female
  Weight: 112.49 kg

DRUGS (2)
  1. MORPHINE INJECTION [Suspect]
     Active Substance: MORPHINE
  2. PRENATAL VITAMINS [Concomitant]
     Active Substance: VITAMINS

REACTIONS (4)
  - Pruritus [None]
  - Maternal exposure during pregnancy [None]
  - Caesarean section [None]
  - Rash [None]

NARRATIVE: CASE EVENT DATE: 20181115
